FAERS Safety Report 13352772 (Version 1)
Quarter: 2017Q1

REPORT INFORMATION
  Report Type: Report from Study
  Country: None (occurrence: US)
  Receive Date: 20170320
  Receipt Date: 20170320
  Transmission Date: 20170429
  Serious: Yes (Other)
  Sender: FDA-Public Use
  Company Number: US-ABBVIE-17P-163-1905192-00

PATIENT
  Sex: Female

DRUGS (1)
  1. LUPRON DEPOT [Suspect]
     Active Substance: LEUPROLIDE ACETATE
     Indication: ENDOMETRIOSIS
     Route: 030
     Dates: start: 2011

REACTIONS (6)
  - Appendicitis [Unknown]
  - Nausea [Unknown]
  - Bile duct obstruction [Unknown]
  - Angioplasty [Unknown]
  - Pelvic floor dyssynergia [Unknown]
  - Vomiting [Unknown]
